FAERS Safety Report 16197994 (Version 1)
Quarter: 2019Q2

REPORT INFORMATION
  Report Type: Report from Study
  Country: US (occurrence: US)
  Receive Date: 20190415
  Receipt Date: 20190415
  Transmission Date: 20190711
  Serious: Yes (Hospitalization)
  Sender: FDA-Public Use
  Company Number: US-SA-2019SA101588

PATIENT
  Age: 76 Year
  Sex: Female

DRUGS (1)
  1. INSULIN GLARGINE [Suspect]
     Active Substance: INSULIN GLARGINE
     Indication: TYPE 2 DIABETES MELLITUS
     Dosage: 70 U, QD
     Route: 058

REACTIONS (11)
  - Back disorder [Unknown]
  - Gastrooesophageal reflux disease [Unknown]
  - Sepsis [Unknown]
  - Depression [Unknown]
  - Peripheral sensory neuropathy [Unknown]
  - Diarrhoea [Unknown]
  - Pyelonephritis [Unknown]
  - Renal disorder [Unknown]
  - Arthritis [Unknown]
  - Gout [Unknown]
  - Hypothyroidism [Unknown]
